FAERS Safety Report 21065114 (Version 2)
Quarter: 2022Q4

REPORT INFORMATION
  Report Type: Report from Study
  Country: US (occurrence: US)
  Receive Date: 20220711
  Receipt Date: 20221110
  Transmission Date: 20230113
  Serious: Yes (Hospitalization, Other)
  Sender: FDA-Public Use
  Company Number: US-TAKEDA-2021TUS048607

PATIENT
  Sex: Female
  Weight: 65 kg

DRUGS (19)
  1. HUMAN IMMUNOGLOBULIN G [Suspect]
     Active Substance: HUMAN IMMUNOGLOBULIN G
     Indication: Congenital hypogammaglobulinaemia
     Dosage: 40 GRAM, Q4WEEKS
     Route: 042
     Dates: start: 20210624
  2. HUMAN IMMUNOGLOBULIN G [Suspect]
     Active Substance: HUMAN IMMUNOGLOBULIN G
     Indication: Congenital hypogammaglobulinaemia
     Dosage: 40 GRAM, Q4WEEKS
     Route: 042
     Dates: start: 20210624
  3. HUMAN IMMUNOGLOBULIN G [Suspect]
     Active Substance: HUMAN IMMUNOGLOBULIN G
     Indication: Immunodeficiency common variable
  4. HUMAN IMMUNOGLOBULIN G [Suspect]
     Active Substance: HUMAN IMMUNOGLOBULIN G
     Indication: Immunodeficiency common variable
  5. ACETAMINOPHEN [Concomitant]
     Active Substance: ACETAMINOPHEN
  6. DIPHENHYDRAMINE [Concomitant]
     Active Substance: DIPHENHYDRAMINE
  7. LIDOCAINE [Concomitant]
     Active Substance: LIDOCAINE
  8. SODIUM CHLORIDE [Concomitant]
     Active Substance: SODIUM CHLORIDE
  9. EPINEPHRINE [Concomitant]
     Active Substance: EPINEPHRINE
  10. SINGULAIR [Concomitant]
     Active Substance: MONTELUKAST SODIUM
  11. CIPRODEX [Concomitant]
     Active Substance: CIPROFLOXACIN HYDROCHLORIDE\DEXAMETHASONE
  12. ALBUTEROL SULFATE [Concomitant]
     Active Substance: ALBUTEROL SULFATE
  13. TUMS [Concomitant]
     Active Substance: CALCIUM CARBONATE
  14. PULMICORT TURBUHALER [Concomitant]
     Active Substance: BUDESONIDE
  15. FERROUS SULFATE [Concomitant]
     Active Substance: FERROUS SULFATE
  16. OMEPRAZOLE [Concomitant]
     Active Substance: OMEPRAZOLE
  17. ROCALTROL [Concomitant]
     Active Substance: CALCITRIOL
  18. VITAMIN D3 [Concomitant]
     Active Substance: CHOLECALCIFEROL
  19. ZYRTEC [Concomitant]
     Active Substance: CETIRIZINE HYDROCHLORIDE

REACTIONS (12)
  - Mastoiditis [Recovered/Resolved]
  - Hypoacusis [Unknown]
  - Infusion related reaction [Unknown]
  - Multiple allergies [Unknown]
  - Sinusitis [Unknown]
  - Otitis media [Unknown]
  - Acute sinusitis [Unknown]
  - Tenderness [Unknown]
  - Pruritus allergic [Unknown]
  - Headache [Unknown]
  - Chills [Unknown]
  - Pyrexia [Unknown]
